FAERS Safety Report 6805046-1 (Version None)
Quarter: 2010Q2

REPORT INFORMATION
  Report Type: 
  Country: None (occurrence: None)
  Receive Date: 20100628
  Receipt Date: 20070724
  Transmission Date: 20101027
  Serious: No
  Sender: FDA-Public Use
  Company Number: US-PFIZER INC-2007061255

PATIENT
  Sex: Female
  Weight: 58.97 kg

DRUGS (5)
  1. XALATAN [Suspect]
     Indication: GLAUCOMA
     Dates: start: 20060101
  2. EVISTA [Concomitant]
  3. TRANSENE [Concomitant]
  4. DETROL [Concomitant]
  5. VITAMINS [Concomitant]

REACTIONS (1)
  - EYE DISORDER [None]
